FAERS Safety Report 24234745 (Version 1)
Quarter: 2024Q3

REPORT INFORMATION
  Report Type: Spontaneous
  Country: US (occurrence: None)
  Receive Date: 20240820
  Receipt Date: 20240820
  Transmission Date: 20241017
  Serious: Yes (Death)
  Sender: Public
  Company Number: None

PATIENT
  Age: 93 Year
  Sex: Female
  Weight: 52.65 kg

DRUGS (8)
  1. REVLIMID [Suspect]
     Active Substance: LENALIDOMIDE
     Indication: Follicular lymphoma
     Dosage: FREQUENCY : DAILY;?
     Route: 048
     Dates: start: 20240125
  2. ALLOPURINOL [Concomitant]
     Active Substance: ALLOPURINOL
  3. GABAPENTIN [Concomitant]
     Active Substance: GABAPENTIN
  4. LISINOPRIL [Concomitant]
     Active Substance: LISINOPRIL
  5. Revlimid 10 mg capsule [Concomitant]
  6. SIMVASTATIN 40MG TAB [Concomitant]
  7. traMADol HCl 50 MG Oral Tablet [Concomitant]
  8. verapamil 120 mg tablet [Concomitant]

REACTIONS (3)
  - Fall [None]
  - Head injury [None]
  - Cerebral haemorrhage [None]

NARRATIVE: CASE EVENT DATE: 20240818
